FAERS Safety Report 5338778-5 (Version None)
Quarter: 2007Q2

REPORT INFORMATION
  Report Type: 
  Country: None (occurrence: None)
  Receive Date: 20070322
  Receipt Date: 20060328
  Transmission Date: 20071010
  Serious: Yes (Hospitalization)
  Sender: FDA-Public Use
  Company Number: 200610876BCC

PATIENT
  Age: 73 Year
  Sex: Male
  Weight: 77.1115 kg

DRUGS (3)
  1. ALEVE [Suspect]
     Indication: ARTHRITIS
     Dosage: 200 MG, QID, ORAL
     Route: 048
     Dates: start: 20030101
  2. TAXOTERE [Suspect]
     Indication: NON-SMALL CELL LUNG CANCER
     Dosage: Q3K
     Dates: start: 20060126
  3. MOBIC [Concomitant]

REACTIONS (3)
  - DIARRHOEA HAEMORRHAGIC [None]
  - DUODENAL ULCER [None]
  - HAEMOGLOBIN ABNORMAL [None]
